FAERS Safety Report 19031330 (Version 1)
Quarter: 2021Q1

REPORT INFORMATION
  Report Type: Spontaneous
  Country: US (occurrence: US)
  Receive Date: 20210318
  Receipt Date: 20210318
  Transmission Date: 20210420
  Serious: Yes (Hospitalization)
  Sender: FDA-Public Use
  Company Number: None

PATIENT
  Age: 62 Year
  Sex: Female
  Weight: 127 kg

DRUGS (3)
  1. RITUXIMAB (MOAB C2B8 ANTI CD20, CHIMERIC) [Suspect]
     Active Substance: RITUXIMAB
     Dates: end: 20210225
  2. BENDAMUSTINE HYDROCHLORIDE. [Suspect]
     Active Substance: BENDAMUSTINE HYDROCHLORIDE
     Dates: end: 20210129
  3. CYTARABINE. [Suspect]
     Active Substance: CYTARABINE
     Dates: end: 20210226

REACTIONS (8)
  - Platelet count decreased [None]
  - Visual impairment [None]
  - White blood cell count decreased [None]
  - Injection site haemorrhage [None]
  - Headache [None]
  - Lymphocyte count decreased [None]
  - Traumatic haematoma [None]
  - Neutrophil count decreased [None]

NARRATIVE: CASE EVENT DATE: 20210309
